FAERS Safety Report 18970184 (Version 2)
Quarter: 2021Q1

REPORT INFORMATION
  Report Type: Spontaneous
  Country: NL (occurrence: FR)
  Receive Date: 20210304
  Receipt Date: 20210309
  Transmission Date: 20210420
  Serious: Yes (Life-Threatening)
  Sender: FDA-Public Use
  Company Number: FR-FRESENIUS KABI-FK202101821

PATIENT
  Age: 71 Year
  Sex: Male
  Weight: 85 kg

DRUGS (9)
  1. TESTOSTERONE ENANTHATE. [Concomitant]
     Active Substance: TESTOSTERONE ENANTHATE
     Indication: PRODUCT USED FOR UNKNOWN INDICATION
     Dosage: 250 MG MONTHLY
     Route: 030
     Dates: end: 202010
  2. OXYGEN. [Concomitant]
     Active Substance: OXYGEN
     Dosage: 3 MINUTES OF PREOXYGENATION WITH A FACE MASK, 100 PERCENT OXYGEN
     Route: 065
  3. DEXMEDETOMIDINE. [Suspect]
     Active Substance: DEXMEDETOMIDINE
     Indication: ANAESTHESIA
     Dosage: 0.5 UG/KG
     Route: 042
     Dates: start: 20210114
  4. PROPOFOL (MANUFACTURER UNKNOWN) [Suspect]
     Active Substance: PROPOFOL
     Indication: INDUCTION OF ANAESTHESIA
     Dosage: 3 MG/KG
     Route: 042
     Dates: start: 20210114
  5. ROCURONIUM BROMIDE. [Suspect]
     Active Substance: ROCURONIUM BROMIDE
     Indication: INDUCTION OF ANAESTHESIA
     Dosage: 1.2 MG/KG
     Route: 042
     Dates: start: 20210114
  6. IRBESARTAN. [Concomitant]
     Active Substance: IRBESARTAN
     Indication: HYPERTENSION
     Dosage: 150 MG DAILY
     Route: 048
  7. KETAMINE [Suspect]
     Active Substance: KETAMINE
     Indication: INDUCTION OF ANAESTHESIA
     Dosage: 0.5 MG/KG
     Route: 041
     Dates: start: 20210114
  8. DEXMEDETOMIDINE. [Suspect]
     Active Substance: DEXMEDETOMIDINE
     Dosage: 0.25 UG/KG
     Route: 042
     Dates: start: 20210114
  9. LIDOCAINE (MANUFACTURER UNKNOWN) [Suspect]
     Active Substance: LIDOCAINE
     Indication: INDUCTION OF ANAESTHESIA
     Dosage: 2 MG/KG
     Route: 041
     Dates: start: 20210114

REACTIONS (2)
  - Cardio-respiratory arrest [Recovered/Resolved]
  - Product use in unapproved indication [Unknown]

NARRATIVE: CASE EVENT DATE: 20210114
